FAERS Safety Report 25007473 (Version 1)
Quarter: 2025Q1

REPORT INFORMATION
  Report Type: Spontaneous
  Country: US (occurrence: US)
  Receive Date: 20250225
  Receipt Date: 20250225
  Transmission Date: 20250408
  Serious: Yes (Other)
  Sender: AMGEN
  Company Number: US-AMGEN-USASP2025032418

PATIENT
  Age: 75 Year
  Sex: Male
  Weight: 15.75 kg

DRUGS (8)
  1. ENBREL [Suspect]
     Active Substance: ETANERCEPT
     Indication: Psoriatic arthropathy
     Route: 058
     Dates: start: 2024
  2. OTEZLA [Suspect]
     Active Substance: APREMILAST
     Indication: Psoriatic arthropathy
     Dosage: 30 MILLIGRAM, QD
     Route: 048
     Dates: start: 20241101
  3. OTEZLA [Suspect]
     Active Substance: APREMILAST
     Dosage: 15 MILLIGRAM, QD
     Route: 048
  4. ONDANSETRON [Concomitant]
     Active Substance: ONDANSETRON
     Indication: Product used for unknown indication
  5. TRIAMTERENE [Concomitant]
     Active Substance: TRIAMTERENE
     Indication: Product used for unknown indication
     Route: 048
  6. CARVEDILOL [Concomitant]
     Active Substance: CARVEDILOL
  7. HYDROCHLOROTHIAZIDE [Concomitant]
     Active Substance: HYDROCHLOROTHIAZIDE
  8. RECLAST [Concomitant]
     Active Substance: ZOLEDRONIC ACID
     Dosage: UNK UNK, Q12MO

REACTIONS (16)
  - Psoriatic arthropathy [Unknown]
  - Hypothyroidism [Unknown]
  - Fall [Unknown]
  - Weight increased [Recovered/Resolved]
  - Weight decreased [Unknown]
  - Intentional product misuse [Unknown]
  - Nausea [Unknown]
  - Atrial flutter [Unknown]
  - Sleep disorder due to general medical condition, insomnia type [Unknown]
  - Chest pain [Unknown]
  - Hypotension [Recovering/Resolving]
  - Illness [Unknown]
  - Thinking abnormal [Unknown]
  - Cushingoid [Unknown]
  - Contusion [Unknown]
  - Osteopenia [Unknown]

NARRATIVE: CASE EVENT DATE: 20240101
